FAERS Safety Report 10068975 (Version 1)
Quarter: 2014Q2

REPORT INFORMATION
  Report Type: Spontaneous
  Country: IT (occurrence: IT)
  Receive Date: 20140409
  Receipt Date: 20140409
  Transmission Date: 20141212
  Serious: Yes (Other)
  Sender: FDA-Public Use
  Company Number: IT-WATSON-2014-06617

PATIENT
  Age: 46 Year
  Sex: Female

DRUGS (2)
  1. CARBOPLATIN (UNKNOWN) [Suspect]
     Indication: OVARIAN CANCER
     Dosage: 580 MG, CYCLICAL
     Route: 042
     Dates: start: 20140305, end: 20140317
  2. PACLITAXEL MYLAN [Suspect]
     Indication: OVARIAN CANCER
     Dosage: 316.8 MG, TOTAL
     Route: 042
     Dates: start: 20140305, end: 20140305

REACTIONS (4)
  - Dyspnoea [Recovered/Resolved]
  - Erythema [Recovered/Resolved]
  - Feeling hot [Recovered/Resolved]
  - Headache [Recovered/Resolved]
